FAERS Safety Report 8965886 (Version 1)
Quarter: 2012Q4

REPORT INFORMATION
  Report Type: Spontaneous
  Country: DK (occurrence: None)
  Receive Date: 20121204
  Receipt Date: 20121204
  Transmission Date: 20130627
  Serious: Yes (Other)
  Sender: FDA-Public Use
  Company Number: 2012MA013630

PATIENT
  Age: 57 Year
  Sex: Male

DRUGS (11)
  1. METFORMIN HYDROCHLORIDE EXTENDED-RELEASE [Suspect]
     Indication: BLOOD SUGAR DECREASED
     Dates: start: 20120915
  2. SALBUTAMOL [Concomitant]
  3. ACETYLSALICYLIC ACID [Concomitant]
  4. CITALOPRAM [Concomitant]
  5. AMLODIPINE [Concomitant]
  6. BENDROFLUMETHIAZIDE [Concomitant]
  7. PERINDOPRIL [Concomitant]
  8. VICODIN [Concomitant]
  9. AMITRIPTYLINE [Concomitant]
  10. SIMVASTATIN [Concomitant]
  11. GABAPENTIN [Concomitant]

REACTIONS (2)
  - Blood glucose increased [None]
  - Flatulence [None]
